FAERS Safety Report 19813281 (Version 1)
Quarter: 2021Q3

REPORT INFORMATION
  Report Type: Spontaneous
  Country: US (occurrence: US)
  Receive Date: 20210907
  Receipt Date: 20210907
  Transmission Date: 20211014
  Serious: No
  Sender: FDA-Public Use
  Company Number: None

PATIENT
  Sex: Female

DRUGS (1)
  1. METHOTREXATE MDV (2ML/VL) 25MG/ML NOVAPLUS/HOSPIRA [Suspect]
     Active Substance: METHOTREXATE
     Indication: ARTHROPATHY
     Route: 058

REACTIONS (4)
  - Muscle disorder [None]
  - Drug hypersensitivity [None]
  - Dizziness [None]
  - Dyspnoea [None]
